FAERS Safety Report 16489848 (Version 1)
Quarter: 2019Q2

REPORT INFORMATION
  Report Type: Spontaneous
  Country: ZA (occurrence: ZA)
  Receive Date: 20190628
  Receipt Date: 20190628
  Transmission Date: 20190711
  Serious: Yes (Hospitalization, Other)
  Sender: FDA-Public Use
  Company Number: ZA-CIPLA LTD.-2019ZA04670

PATIENT

DRUGS (1)
  1. EFAVIRENZ. [Suspect]
     Active Substance: EFAVIRENZ
     Indication: HIV INFECTION
     Dosage: 600 MILLIGRAM PER DAY, ONE COURSE
     Route: 048
     Dates: start: 20180214

REACTIONS (5)
  - Haemoglobin decreased [Unknown]
  - Ventricular extrasystoles [Unknown]
  - Vitamin B12 deficiency [Unknown]
  - Exposure during pregnancy [Unknown]
  - Platelet count decreased [Unknown]
